FAERS Safety Report 16790099 (Version 1)
Quarter: 2019Q3

REPORT INFORMATION
  Report Type: Spontaneous
  Country: GR (occurrence: GR)
  Receive Date: 20190910
  Receipt Date: 20190910
  Transmission Date: 20191005
  Serious: Yes (Life-Threatening, Hospitalization)
  Sender: FDA-Public Use
  Company Number: GR-TEVA-2019-GR-1105239

PATIENT
  Age: 74 Year
  Sex: Male

DRUGS (4)
  1. FONDAPARINUX [Suspect]
     Active Substance: FONDAPARINUX
     Indication: ANTICOAGULANT THERAPY
     Route: 058
  2. ASPIRIN. [Suspect]
     Active Substance: ASPIRIN
     Indication: ANTIPLATELET THERAPY
     Route: 065
  3. CLOPIDOGREL [Suspect]
     Active Substance: CLOPIDOGREL BISULFATE
     Indication: ANTIPLATELET THERAPY
     Route: 065
  4. ENOXAPARIN [Suspect]
     Active Substance: ENOXAPARIN
     Indication: ANTICOAGULANT THERAPY
     Dosage: DOSE EQUIVALENT TO 2000 ANTI-XA; ADMINISTERED TWICE A DAY
     Route: 058

REACTIONS (8)
  - Ischaemic stroke [Unknown]
  - Bundle branch block left [Unknown]
  - Ventricular fibrillation [Unknown]
  - Left ventricular dysfunction [Unknown]
  - Renal failure [Unknown]
  - Vascular stent thrombosis [Unknown]
  - Acute pulmonary oedema [Unknown]
  - Heparin-induced thrombocytopenia [Unknown]
